FAERS Safety Report 6999190-6 (Version None)
Quarter: 2010Q3

REPORT INFORMATION
  Report Type: 
  Country: None (occurrence: None)
  Receive Date: 20100920
  Receipt Date: 20100223
  Transmission Date: 20110219
  Serious: No
  Sender: FDA-Public Use
  Company Number: US-ASTRAZENECA-2010SE07863

PATIENT
  Age: 50 Year
  Sex: Male
  Weight: 59 kg

DRUGS (1)
  1. SEROQUEL [Suspect]
     Indication: NERVOUSNESS
     Route: 048

REACTIONS (5)
  - ABDOMINAL PAIN UPPER [None]
  - DRUG DOSE OMISSION [None]
  - EYE DISORDER [None]
  - NAUSEA [None]
  - PYREXIA [None]
